FAERS Safety Report 13614165 (Version 2)
Quarter: 2017Q2

REPORT INFORMATION
  Report Type: Spontaneous
  Country: DE (occurrence: DE)
  Receive Date: 20170606
  Receipt Date: 20170606
  Transmission Date: 20170830
  Serious: Yes (Hospitalization)
  Sender: FDA-Public Use
  Company Number: DE-FERRINGPH-2017FE02468

PATIENT

DRUGS (1)
  1. PICOPREP [Suspect]
     Active Substance: ANHYDROUS CITRIC ACID\MAGNESIUM OXIDE\SODIUM PICOSULFATE
     Indication: BOWEL PREPARATION
     Dosage: 1 DF IN ONE DAY
     Route: 048
     Dates: start: 20170510, end: 20170510

REACTIONS (7)
  - Eye haemorrhage [Unknown]
  - Haematemesis [Recovered/Resolved]
  - Dyspnoea [Recovered/Resolved]
  - Dyspepsia [Recovered/Resolved]
  - Ocular hyperaemia [Unknown]
  - Hypersensitivity [Recovered/Resolved]
  - Circulatory collapse [Recovered/Resolved]

NARRATIVE: CASE EVENT DATE: 20170510
